FAERS Safety Report 25351377 (Version 1)
Quarter: 2025Q2

REPORT INFORMATION
  Report Type: Spontaneous
  Country: FR (occurrence: FR)
  Receive Date: 20250523
  Receipt Date: 20250523
  Transmission Date: 20250717
  Serious: Yes (Life-Threatening)
  Sender: TEVA
  Company Number: None

PATIENT
  Age: 74 Year
  Sex: Female
  Weight: 43 kg

DRUGS (2)
  1. LEVOFLOXACIN [Suspect]
     Active Substance: LEVOFLOXACIN
     Indication: Urinary tract infection
     Route: 048
     Dates: start: 20250404, end: 20250406
  2. LEVOFLOXACIN [Suspect]
     Active Substance: LEVOFLOXACIN
     Indication: Urinary tract infection
     Route: 042
     Dates: start: 20250407, end: 20250410

REACTIONS (5)
  - Tonic clonic movements [Recovering/Resolving]
  - Fanconi syndrome acquired [Recovering/Resolving]
  - Hypomagnesaemia [Recovering/Resolving]
  - Hypophosphataemia [Recovering/Resolving]
  - Hypocalcaemia [Recovering/Resolving]

NARRATIVE: CASE EVENT DATE: 20250409
